FAERS Safety Report 6857134-1 (Version None)
Quarter: 2010Q3

REPORT INFORMATION
  Report Type: 
  Country: None (occurrence: None)
  Receive Date: 20100719
  Receipt Date: 20100706
  Transmission Date: 20110219
  Serious: Yes (Hospitalization)
  Sender: FDA-Public Use
  Company Number: B0665847A

PATIENT
  Sex: Female
  Weight: 50 kg

DRUGS (5)
  1. MARAVIROC [Suspect]
     Indication: HIV INFECTION
     Dosage: 600MG TWICE PER DAY
     Dates: start: 20100322
  2. RIFAMATE [Suspect]
     Indication: TUBERCULOSIS
     Dosage: 1TAB TWICE PER DAY
     Dates: start: 20100626, end: 20100705
  3. PYRAZINAMIDE [Suspect]
     Indication: TUBERCULOSIS
     Dosage: 500MG THREE TIMES PER DAY
     Dates: start: 20100626, end: 20100705
  4. ETHAMBUTOL HYDROCHLORIDE [Suspect]
     Indication: TUBERCULOSIS
     Dosage: 400MG THREE TIMES PER DAY
     Dates: start: 20100626, end: 20100705
  5. ATRIPLA [Concomitant]
     Indication: HIV INFECTION
     Dates: start: 20090706

REACTIONS (1)
  - CYTOLYTIC HEPATITIS [None]
